FAERS Safety Report 11647066 (Version 1)
Quarter: 2015Q4

REPORT INFORMATION
  Report Type: Report from Study
  Country: US (occurrence: US)
  Receive Date: 20151021
  Receipt Date: 20151021
  Transmission Date: 20160304
  Serious: No
  Sender: FDA-Public Use
  Company Number: US-AMGEN-USASP2015106354

PATIENT
  Age: 60 Year
  Sex: Female

DRUGS (1)
  1. ENBREL [Suspect]
     Active Substance: ETANERCEPT
     Indication: PSORIASIS
     Dosage: UNK
     Route: 065

REACTIONS (13)
  - Hyperhidrosis [Unknown]
  - Cough [Unknown]
  - Drug effect incomplete [Unknown]
  - Metabolic disorder [Unknown]
  - Scoliosis [Unknown]
  - Injection site discolouration [Unknown]
  - Dyspnoea [Unknown]
  - Nausea [Unknown]
  - Injection site haemorrhage [Unknown]
  - Feeling hot [Unknown]
  - Dysphagia [Unknown]
  - Feeling abnormal [Unknown]
  - Fibromyalgia [Unknown]

NARRATIVE: CASE EVENT DATE: 201510
